FAERS Safety Report 8664749 (Version 2)
Quarter: 2012Q4

REPORT INFORMATION
  Report Type: 
  Country: DE (occurrence: DE)
  Receive Date: 20120713
  Receipt Date: 20121024
  Transmission Date: 20130627
  Serious: Yes (Death, Hospitalization)
  Sender: FDA-Public Use
  Company Number: DE-ROCHE-1087826

PATIENT
  Sex: Female

DRUGS (2)
  1. LUCENTIS [Suspect]
     Indication: PRODUCT USED FOR UNKNOWN INDICATION
     Route: 050
     Dates: start: 20120327
  2. LUCENTIS [Suspect]
     Route: 050
     Dates: start: 20120524

REACTIONS (4)
  - Death [Fatal]
  - Abdominal discomfort [Unknown]
  - General physical health deterioration [Unknown]
  - Gastrointestinal disorder [Unknown]
